FAERS Safety Report 9184847 (Version 1)
Quarter: 2013Q1

REPORT INFORMATION
  Report Type: Spontaneous
  Country: US (occurrence: US)
  Receive Date: 20130325
  Receipt Date: 20130325
  Transmission Date: 20140127
  Serious: Yes (Other)
  Sender: FDA-Public Use
  Company Number: US-BRISTOL-MYERS SQUIBB COMPANY-16496515

PATIENT
  Age: 57 Year
  Sex: Male

DRUGS (1)
  1. ERBITUX [Suspect]
     Dosage: APPROXLY ON OCT11,DISCONTINUED FROM THERAPY PROBABLY 2 OR 3 WEEKS AGO
     Dates: start: 201110, end: 201203

REACTIONS (1)
  - Rash [Unknown]
